FAERS Safety Report 5353974-9 (Version None)
Quarter: 2007Q2

REPORT INFORMATION
  Report Type: 
  Country: None (occurrence: None)
  Receive Date: 20070608
  Receipt Date: 20070608
  Transmission Date: 20071010
  Serious: Yes (Other)
  Sender: FDA-Public Use
  Company Number: None

PATIENT
  Age: 49 Year
  Sex: Female
  Weight: 56.6996 kg

DRUGS (8)
  1. LYRICA [Suspect]
     Indication: MIGRAINE
     Dosage: 75 MG DAILY UNK
     Dates: start: 20070527, end: 20070531
  2. SYNTHROID [Concomitant]
  3. ALDACTONE [Concomitant]
  4. BETAXOLOL [Concomitant]
  5. TIZANIDINE HCL [Concomitant]
  6. CALCIUM CHLORIDE [Concomitant]
  7. GNC WOMEN'S ULTRA MEGA ACTIVE MARYLN FORMULA [Concomitant]
  8. GNC OCULAR FORMULA [Concomitant]

REACTIONS (2)
  - PAIN [None]
  - PALPITATIONS [None]
